FAERS Safety Report 5325036-8 (Version None)
Quarter: 2007Q2

REPORT INFORMATION
  Report Type: 
  Country: None (occurrence: None)
  Receive Date: 20070515
  Receipt Date: 20070509
  Transmission Date: 20071010
  Serious: Yes (Hospitalization)
  Sender: FDA-Public Use
  Company Number: FR-BRISTOL-MYERS SQUIBB COMPANY-13775812

PATIENT
  Age: 85 Year
  Sex: Female

DRUGS (6)
  1. COAPROVEL TABS 150MG/12.5MG [Suspect]
     Route: 048
     Dates: end: 20070301
  2. LERCAN [Suspect]
     Dates: end: 20070301
  3. FLECAINIDE ACETATE [Concomitant]
  4. COUMADIN [Concomitant]
  5. CARBIMAZOLE [Concomitant]
  6. ANTIBIOTICS [Concomitant]

REACTIONS (5)
  - ANOREXIA [None]
  - HYPOTENSION [None]
  - MALAISE [None]
  - ORAL FUNGAL INFECTION [None]
  - VOMITING [None]
